FAERS Safety Report 26054709 (Version 1)
Quarter: 2025Q4

REPORT INFORMATION
  Report Type: Spontaneous
  Country: US (occurrence: US)
  Receive Date: 20251117
  Receipt Date: 20251117
  Transmission Date: 20260117
  Serious: Yes (Death, Life-Threatening, Hospitalization)
  Sender: AMGEN
  Company Number: US-AMGEN-USASP2025223409

PATIENT
  Age: 34 Year
  Sex: Female

DRUGS (5)
  1. PREDNISONE [Suspect]
     Active Substance: PREDNISONE
     Indication: Product used for unknown indication
     Dosage: UNK
     Route: 065
  2. HYDROXYCHLOROQUINE [Concomitant]
     Active Substance: HYDROXYCHLOROQUINE
  3. METHOTREXATE [Concomitant]
     Active Substance: METHOTREXATE
  4. TACROLIMUS [Concomitant]
     Active Substance: TACROLIMUS
  5. CEFEPIME [Concomitant]
     Active Substance: CEFEPIME HYDROCHLORIDE

REACTIONS (14)
  - Death [Fatal]
  - Respiratory failure [Unknown]
  - Encephalopathy [Unknown]
  - Distributive shock [Unknown]
  - Leukocytosis [Unknown]
  - Lactic acidosis [Unknown]
  - Mental status changes [Unknown]
  - Renal impairment [Unknown]
  - Histoplasmosis disseminated [Unknown]
  - Dermatomyositis [Unknown]
  - Haemophagocytic lymphohistiocytosis [Unknown]
  - Disseminated intravascular coagulation [Unknown]
  - Hepatic function abnormal [Unknown]
  - Cellulitis [Unknown]
